FAERS Safety Report 15077195 (Version 4)
Quarter: 2019Q2

REPORT INFORMATION
  Report Type: Report from Study
  Country: US (occurrence: US)
  Receive Date: 20180627
  Receipt Date: 20190402
  Transmission Date: 20190711
  Serious: Yes (Death, Hospitalization)
  Sender: FDA-Public Use
  Company Number: US-ACTELION-A-NJ2017-158941

PATIENT
  Sex: Female
  Weight: 69.39 kg

DRUGS (6)
  1. LETAIRIS [Concomitant]
     Active Substance: AMBRISENTAN
  2. VELETRI [Suspect]
     Active Substance: EPOPROSTENOL
     Indication: PULMONARY HYPERTENSION
     Dosage: 30 NG/KG, PER MIN
     Route: 042
  3. VELETRI [Suspect]
     Active Substance: EPOPROSTENOL
     Dosage: 32.5 NG/KG, PER MIN
     Route: 042
  4. VELETRI [Suspect]
     Active Substance: EPOPROSTENOL
     Dosage: 55 NG/KG, PER MIN
     Route: 042
  5. WARFARIN [Concomitant]
     Active Substance: WARFARIN
  6. REVATIO [Concomitant]
     Active Substance: SILDENAFIL CITRATE

REACTIONS (12)
  - Weight decreased [Unknown]
  - Fluid overload [Unknown]
  - Fluid retention [Unknown]
  - Back pain [Unknown]
  - Heart rate increased [Unknown]
  - Hospitalisation [Unknown]
  - Death [Fatal]
  - Dyspnoea [Unknown]
  - Headache [Unknown]
  - Spinal compression fracture [Unknown]
  - Weight increased [Unknown]
  - Diarrhoea [Unknown]
